FAERS Safety Report 8493645-3 (Version None)
Quarter: 2012Q3

REPORT INFORMATION
  Report Type: 
  Country: None (occurrence: None)
  Receive Date: 20120706
  Receipt Date: 20120202
  Transmission Date: 20120928
  Serious: Yes (Death)
  Sender: FDA-Public Use
  Company Number: VN-BAXTER-2012BAX010278

PATIENT
  Sex: Male

DRUGS (3)
  1. DIANEAL [Suspect]
     Route: 033
     Dates: start: 20110309
  2. DIANEAL [Suspect]
     Route: 033
     Dates: start: 20110309
  3. DIANEAL [Suspect]
     Route: 033
     Dates: start: 20110309

REACTIONS (1)
  - MALNUTRITION [None]
